FAERS Safety Report 8941864 (Version 2)
Quarter: 2012Q4

REPORT INFORMATION
  Report Type: Report from Study
  Country: US (occurrence: US)
  Receive Date: 20121203
  Receipt Date: 20121204
  Transmission Date: 20130627
  Serious: Yes (Other)
  Sender: FDA-Public Use
  Company Number: US-ABBOTT-12P-163-1013090-00

PATIENT
  Sex: Male

DRUGS (4)
  1. HUMIRA [Suspect]
     Indication: CROHN^S DISEASE
     Route: 058
     Dates: start: 201209
  2. FLONASE [Concomitant]
     Indication: PRODUCT USED FOR UNKNOWN INDICATION
     Dosage: NASAL SPRAY
  3. ZYFLO CR [Concomitant]
     Indication: PRODUCT USED FOR UNKNOWN INDICATION
  4. PATIDAY EYE DROPS [Concomitant]
     Indication: EYE ALLERGY
     Route: 047

REACTIONS (1)
  - Intervertebral disc protrusion [Recovered/Resolved]
